FAERS Safety Report 11431370 (Version 2)
Quarter: 2015Q4

REPORT INFORMATION
  Report Type: Spontaneous
  Country: US (occurrence: US)
  Receive Date: 20150828
  Receipt Date: 20151007
  Transmission Date: 20160304
  Serious: Yes (Disabling)
  Sender: FDA-Public Use
  Company Number: US-MYLANLABS-2015M1027715

PATIENT

DRUGS (3)
  1. LISINOPRIL. [Concomitant]
     Active Substance: LISINOPRIL
     Indication: BLOOD PRESSURE MEASUREMENT
     Dosage: 10 MG, QD
     Route: 048
     Dates: start: 2000
  2. TEMAZEPAM CAPSULES USP [Suspect]
     Active Substance: TEMAZEPAM
     Indication: INSOMNIA
     Dosage: 15 MG, HS
     Route: 048
     Dates: start: 20130907, end: 20130915
  3. METFORMIN [Concomitant]
     Active Substance: METFORMIN HYDROCHLORIDE
     Indication: DIABETES MELLITUS
     Dosage: UNK
     Route: 048
     Dates: start: 2009

REACTIONS (3)
  - Amnesia [Not Recovered/Not Resolved]
  - Headache [Not Recovered/Not Resolved]
  - Stress [Not Recovered/Not Resolved]

NARRATIVE: CASE EVENT DATE: 20130916
